FAERS Safety Report 13503454 (Version 1)
Quarter: 2017Q2

REPORT INFORMATION
  Report Type: Spontaneous
  Country: ES (occurrence: ES)
  Receive Date: 20170502
  Receipt Date: 20170502
  Transmission Date: 20170830
  Serious: Yes (Other)
  Sender: FDA-Public Use
  Company Number: PHHY2017ES063045

PATIENT
  Age: 91 Year
  Sex: Female

DRUGS (2)
  1. DIOVAN [Suspect]
     Active Substance: VALSARTAN
     Indication: PRODUCT USED FOR UNKNOWN INDICATION
     Dosage: 40 MG, BID
     Route: 065
     Dates: start: 20021023, end: 20170112
  2. AMARIDE [Suspect]
     Active Substance: GLIMEPIRIDE
     Indication: HYPERTENSION
     Dosage: 1 DF, QW (5/50 MG)
     Route: 048
     Dates: start: 2016, end: 20170112

REACTIONS (1)
  - Hyponatraemia [Recovering/Resolving]

NARRATIVE: CASE EVENT DATE: 20170111
